FAERS Safety Report 13789250 (Version 1)
Quarter: 2017Q3

REPORT INFORMATION
  Report Type: Spontaneous
  Country: US (occurrence: US)
  Receive Date: 20170725
  Receipt Date: 20170725
  Transmission Date: 20171127
  Serious: No
  Sender: FDA-Public Use
  Company Number: US-UNITED THERAPEUTICS-UNT-2017-002362

PATIENT
  Age: 42 Year
  Sex: Female
  Weight: 108.84 kg

DRUGS (2)
  1. ORENITRAM [Suspect]
     Active Substance: TREPROSTINIL
     Indication: PULMONARY HYPERTENSION
     Dosage: 12.5 MG, TID
     Route: 048
     Dates: start: 20150515
  2. SILDENAFIL CITRATE. [Concomitant]
     Active Substance: SILDENAFIL CITRATE
     Indication: PRODUCT USED FOR UNKNOWN INDICATION

REACTIONS (4)
  - Pruritus [Unknown]
  - Incorrect dose administered [Unknown]
  - Crying [Unknown]
  - Flushing [Unknown]

NARRATIVE: CASE EVENT DATE: 201702
